FAERS Safety Report 17325751 (Version 1)
Quarter: 2020Q1

REPORT INFORMATION
  Report Type: Spontaneous
  Country: CN (occurrence: CN)
  Receive Date: 20200127
  Receipt Date: 20200127
  Transmission Date: 20200409
  Serious: Yes (Hospitalization)
  Sender: FDA-Public Use
  Company Number: NVSC2020CN018988

PATIENT
  Age: 30 Year
  Sex: Female

DRUGS (4)
  1. MIFEPRISTONE [Concomitant]
     Active Substance: MIFEPRISTONE
     Indication: PLACENTA ACCRETA
     Dosage: 150 MG
     Route: 048
  2. METHOTREXATE. [Suspect]
     Active Substance: METHOTREXATE
     Dosage: 50 MG
     Route: 030
     Dates: start: 20180408
  3. METHOTREXATE. [Suspect]
     Active Substance: METHOTREXATE
     Dosage: 50 MG
     Route: 030
     Dates: start: 20180406
  4. METHOTREXATE. [Suspect]
     Active Substance: METHOTREXATE
     Indication: PLACENTA ACCRETA
     Dosage: 50 MG
     Route: 030
     Dates: start: 20180404

REACTIONS (4)
  - Hepatotoxicity [Recovered/Resolved]
  - Mucosal inflammation [Recovering/Resolving]
  - Bone marrow failure [Recovered/Resolved]
  - Product use in unapproved indication [Unknown]
